FAERS Safety Report 4434629-1 (Version None)
Quarter: 2004Q3

REPORT INFORMATION
  Report Type: 
  Country: None (occurrence: None)
  Receive Date: 20040824
  Receipt Date: 20040813
  Transmission Date: 20050211
  Serious: Yes (Other)
  Sender: FDA-Public Use
  Company Number: HQWYE132610AUG04

PATIENT
  Sex: Female
  Weight: 68.1 kg

DRUGS (4)
  1. EFFEXOR XR [Suspect]
     Indication: DEPRESSION
     Dosage: SEE IMAGE
     Route: 048
     Dates: start: 20030101, end: 20040101
  2. EFFEXOR XR [Suspect]
     Indication: DEPRESSION
     Dosage: SEE IMAGE
     Route: 048
     Dates: start: 20040101, end: 20040101
  3. EFFEXOR XR [Suspect]
     Indication: DEPRESSION
     Dosage: SEE IMAGE
     Route: 048
     Dates: start: 20040101
  4. INHALER (INHALER) [Concomitant]

REACTIONS (5)
  - CARCINOMA [None]
  - DRUG WITHDRAWAL SYNDROME [None]
  - FEAR [None]
  - MORBID THOUGHTS [None]
  - PANIC REACTION [None]
